FAERS Safety Report 8446051 (Version 2)
Quarter: 2012Q4

REPORT INFORMATION
  Report Type: 
  Country: US (occurrence: US)
  Receive Date: 20120307
  Receipt Date: 20120913
  Transmission Date: 20130627
  Serious: No
  Sender: FDA-Public Use
  Company Number: US-ASTRAZENECA-2011SE70719

PATIENT
  Age: 49 Year
  Sex: Female

DRUGS (2)
  1. NEXIUM [Suspect]
     Route: 048
  2. ZOMIG [Suspect]
     Route: 048

REACTIONS (6)
  - Migraine [Unknown]
  - Panic disorder [Unknown]
  - Gastrooesophageal reflux disease [Unknown]
  - Malaise [Unknown]
  - Intentional drug misuse [Unknown]
  - Drug dose omission [Unknown]
